FAERS Safety Report 6019934-X (Version None)
Quarter: 2008Q4

REPORT INFORMATION
  Report Type: 
  Country: None (occurrence: None)
  Receive Date: 20081223
  Receipt Date: 20081211
  Transmission Date: 20090506
  Serious: Yes (Hospitalization)
  Sender: FDA-Public Use
  Company Number: 2008SP023350

PATIENT
  Age: 69 Year
  Sex: Male
  Weight: 95.709 kg

DRUGS (23)
  1. TEMOZOLOMIDE [Suspect]
     Indication: OESOPHAGEAL CARCINOMA
     Dosage: 335 MG;QD;PO; 335 MG;QD;PO
     Route: 048
     Dates: start: 20080828, end: 20081112
  2. TEMOZOLOMIDE [Suspect]
     Indication: OESOPHAGEAL CARCINOMA
     Dosage: 335 MG;QD;PO; 335 MG;QD;PO
     Route: 048
     Dates: start: 20081212
  3. TEMOZOLOMIDE [Suspect]
  4. TEMOZOLOMIDE [Suspect]
  5. ALBUTEROL [Concomitant]
  6. MOMETASONE FUROATE [Concomitant]
  7. SERTRALINE [Concomitant]
  8. TRAZODONE HCL [Concomitant]
  9. ALLOPURINOL [Concomitant]
  10. VITAMIN D/CALCIUM [Concomitant]
  11. IPRATROPIUM /00391402/ [Concomitant]
  12. PRILOSEC [Concomitant]
  13. METHYLPHENIDATE HCL [Concomitant]
  14. ZOFRAN [Concomitant]
  15. FLUOXETINE [Concomitant]
  16. FLOMAX [Concomitant]
  17. CODEINE SUL TAB [Concomitant]
  18. AZITHROMYCIN [Concomitant]
  19. SODIUM CHLORIDE [Concomitant]
  20. PREDNISONE TAB [Concomitant]
  21. TAMSULOSIN HCL [Concomitant]
  22. FLUCONAZOLE [Concomitant]
  23. DOCUSATE [Concomitant]

REACTIONS (11)
  - ANAEMIA [None]
  - BONE MARROW FAILURE [None]
  - CONSTIPATION [None]
  - DEHYDRATION [None]
  - FATIGUE [None]
  - FUNGUS SPUTUM TEST POSITIVE [None]
  - HYPOXIA [None]
  - PAIN [None]
  - PLATELET COUNT DECREASED [None]
  - PNEUMONIA [None]
  - TACHYCARDIA [None]
